FAERS Safety Report 18747558 (Version 10)
Quarter: 2021Q4

REPORT INFORMATION
  Report Type: Report from Study
  Country: IL (occurrence: IL)
  Receive Date: 20210115
  Receipt Date: 20211013
  Transmission Date: 20220303
  Serious: Yes (Death, Hospitalization)
  Sender: FDA-Public Use
  Company Number: IL-ROCHE-2746959

PATIENT
  Age: 77 Year
  Sex: Female
  Weight: 73.7 kg

DRUGS (19)
  1. ATEZOLIZUMAB [Suspect]
     Active Substance: ATEZOLIZUMAB
     Indication: Hepatocellular carcinoma
     Dosage: MOST RECENT DOSE (1200 MG) ON 15/DEC/2020
     Route: 041
     Dates: start: 20201125
  2. BEVACIZUMAB [Suspect]
     Active Substance: BEVACIZUMAB
     Indication: Hepatocellular carcinoma
     Dosage: MOST RECENT DOSE (1150 MG) ON 15/DEC/2020
     Route: 042
     Dates: start: 20201125
  3. TIRAGOLUMAB [Suspect]
     Active Substance: TIRAGOLUMAB
     Indication: Hepatocellular carcinoma
     Dosage: MOST RECENT DOSE (600 MG) ON 15/DEC/2020
     Route: 042
     Dates: start: 20201125
  4. PROPRANOLOL HYDROCHLORIDE [Concomitant]
     Active Substance: PROPRANOLOL HYDROCHLORIDE
     Indication: Hypertension
     Route: 048
     Dates: start: 201505
  5. NEXIUM [Concomitant]
     Active Substance: ESOMEPRAZOLE MAGNESIUM
     Indication: Prophylaxis
     Route: 048
     Dates: start: 202010
  6. ACAMOL (ISRAEL) [Concomitant]
     Indication: Pain
     Route: 048
  7. ALDACTONE [Concomitant]
     Active Substance: SPIRONOLACTONE
     Indication: Hypertension
     Route: 048
     Dates: start: 202010
  8. COSMETICS [Concomitant]
     Active Substance: COSMETICS
     Indication: Lipoma
     Route: 061
  9. AMLODIPINE [Concomitant]
     Active Substance: AMLODIPINE BESYLATE
     Route: 048
     Dates: start: 20210111, end: 20210117
  10. FUSID (ISRAEL) [Concomitant]
     Indication: Hypertension
     Route: 048
     Dates: start: 20201214, end: 20201217
  11. FUSID (ISRAEL) [Concomitant]
     Route: 048
     Dates: start: 20201221
  12. LOSARTAN POTASSIUM [Concomitant]
     Active Substance: LOSARTAN POTASSIUM
     Indication: Hypertension
     Route: 048
     Dates: start: 202012
  13. LOSARTAN POTASSIUM [Concomitant]
     Active Substance: LOSARTAN POTASSIUM
     Route: 048
     Dates: start: 20210113, end: 20210116
  14. PREDNISONE [Concomitant]
     Active Substance: PREDNISONE
     Indication: Hepatic enzyme increased
     Route: 048
     Dates: start: 20210111, end: 20210112
  15. PREDNISONE [Concomitant]
     Active Substance: PREDNISONE
     Route: 048
     Dates: start: 20210113, end: 20210114
  16. PREDNISONE [Concomitant]
     Active Substance: PREDNISONE
     Route: 048
     Dates: start: 20210115, end: 20210124
  17. PREDNISONE [Concomitant]
     Active Substance: PREDNISONE
     Route: 048
     Dates: start: 20210105, end: 20210109
  18. PREDNISONE [Concomitant]
     Active Substance: PREDNISONE
     Dosage: END DATE: 14/JAN/2021
     Route: 048
     Dates: start: 20210115, end: 20210124
  19. CALCIUM\VITAMIN D [Concomitant]
     Active Substance: CALCIUM\VITAMIN D
     Route: 048
     Dates: start: 201208

REACTIONS (1)
  - Encephalopathy [Recovered/Resolved with Sequelae]

NARRATIVE: CASE EVENT DATE: 20210110
